FAERS Safety Report 4567385-7 (Version None)
Quarter: 2005Q1

REPORT INFORMATION
  Report Type: 
  Country: None (occurrence: None)
  Receive Date: 20050127
  Receipt Date: 20050105
  Transmission Date: 20050727
  Serious: Yes (Hospitalization, Other)
  Sender: FDA-Public Use
  Company Number: WAES 0409DEU00165

PATIENT
  Age: 62 Year
  Sex: Female

DRUGS (19)
  1. CAP APREPITANT [Suspect]
     Indication: PROPHYLAXIS OF NAUSEA AND VOMITING
     Dosage: 125 MG/DAILY, PO
     Route: 048
     Dates: start: 20040915, end: 20040915
  2. INJ PLACEBO [Suspect]
     Indication: PROPHYLAXIS OF NAUSEA AND VOMITING
     Dosage: IV
     Route: 042
     Dates: start: 20040915, end: 20040915
  3. ENOXAPARIN SODIUM [Concomitant]
  4. MULTIBIONATA [Concomitant]
  5. ROBINUL [Concomitant]
  6. TRANXENE [Concomitant]
  7. AMPICILLIN SODIUM/SULBACTAM SODIUM [Concomitant]
  8. DESFLURANE [Concomitant]
  9. DICLOFENAC [Concomitant]
  10. DIPYRONE [Concomitant]
  11. FENTANYL [Concomitant]
  12. MIDAZOLAM HCL [Concomitant]
  13. NEOSTIGMINE METHYLSULFATE [Concomitant]
  14. NITROUS OXIDE [Concomitant]
  15. PIRITRAMIDE [Concomitant]
  16. POTASSIUM CHLORIDE [Concomitant]
  17. PROPOFOL [Concomitant]
  18. REMIFENTANIL HYDROCHLORIDE [Concomitant]
  19. ROCURONIUM BROMIDE [Concomitant]

REACTIONS (1)
  - SUBILEUS [None]
